FAERS Safety Report 16750206 (Version 1)
Quarter: 2019Q3

REPORT INFORMATION
  Report Type: Spontaneous
  Country: US (occurrence: US)
  Receive Date: 20190710
  Receipt Date: 20190710
  Transmission Date: 20191005
  Serious: Yes (Hospitalization)
  Sender: FDA-Public Use
  Company Number: None

PATIENT
  Sex: Female

DRUGS (15)
  1. AMITRIPTYLIN [Concomitant]
     Active Substance: AMITRIPTYLINE
  2. PANTOPRAZOLE [Concomitant]
     Active Substance: PANTOPRAZOLE
  3. ELMIRON [Concomitant]
     Active Substance: PENTOSAN POLYSULFATE SODIUM
  4. HYFOCHLOROT [Concomitant]
  5. AMIODARONE [Concomitant]
     Active Substance: AMIODARONE
  6. CLINDAMYCIN. [Concomitant]
     Active Substance: CLINDAMYCIN
  7. ELIQUIS [Concomitant]
     Active Substance: APIXABAN
  8. ONDANSETRON [Concomitant]
     Active Substance: ONDANSETRON
  9. D3 SUPPER STR CAP [Concomitant]
  10. GABAPENTIN. [Concomitant]
     Active Substance: GABAPENTIN
  11. PROLIA [Suspect]
     Active Substance: DENOSUMAB
     Indication: OSTEOPOROSIS
     Dosage: ?          OTHER DOSE:1 SYR;OTHER FREQUENCY:Q 6 MONTHS;?
     Route: 058
  12. CARISOPRODOL. [Concomitant]
     Active Substance: CARISOPRODOL
  13. MONTELUKAST [Concomitant]
     Active Substance: MONTELUKAST SODIUM
  14. ROSUVASTATIN. [Concomitant]
     Active Substance: ROSUVASTATIN
  15. LINZESS [Concomitant]
     Active Substance: LINACLOTIDE

REACTIONS (3)
  - Atrial fibrillation [None]
  - Pericardial effusion [None]
  - Pleural effusion [None]
